FAERS Safety Report 9717894 (Version 2)
Quarter: 2013Q4

REPORT INFORMATION
  Report Type: Report from Study
  Country: US (occurrence: US)
  Receive Date: 20131127
  Receipt Date: 20131127
  Transmission Date: 20140711
  Serious: Yes (Death, Other)
  Sender: FDA-Public Use
  Company Number: US-TEVA-439529USA

PATIENT
  Sex: Female

DRUGS (4)
  1. CLOZAPINE [Suspect]
     Indication: PSYCHOTIC DISORDER
     Dosage: 3 DOSAGE FORMS DAILY; 100 MG BID; 25 MG NOON
     Route: 048
  2. CLONAZEPAM [Concomitant]
     Dosage: 3 DOSAGE FORMS DAILY; 1 MG BID; 0.5 MG NOON
  3. ESCITALOPRAM OXALATE [Concomitant]
     Dosage: 20 MILLIGRAM DAILY;
  4. ORAL CONTRACEPTIVE NOS [Concomitant]

REACTIONS (1)
  - Choking [Fatal]
